FAERS Safety Report 12644813 (Version 1)
Quarter: 2016Q3

REPORT INFORMATION
  Report Type: Spontaneous
  Country: US (occurrence: US)
  Receive Date: 20160811
  Receipt Date: 20160811
  Transmission Date: 20161109
  Serious: No
  Sender: FDA-Public Use
  Company Number: US-PFIZER INC-2016379894

PATIENT
  Age: 62 Year
  Sex: Female
  Weight: 81.65 kg

DRUGS (5)
  1. EFFEXOR XR [Suspect]
     Active Substance: VENLAFAXINE HYDROCHLORIDE
     Indication: DEPRESSION
     Dosage: 35 MG, 3X/DAY
     Route: 048
     Dates: start: 2015, end: 201512
  2. EXEMESTANE. [Concomitant]
     Active Substance: EXEMESTANE
     Indication: HORMONE THERAPY
     Dosage: 25 MG, 1X/DAY IN THE MORNING
     Route: 048
     Dates: start: 201405
  3. EFFEXOR XR [Suspect]
     Active Substance: VENLAFAXINE HYDROCHLORIDE
     Dosage: 35 MG 2 CAPSULES ONCE
     Route: 048
     Dates: start: 20160801
  4. MONTELUKAST [Concomitant]
     Active Substance: MONTELUKAST SODIUM
     Indication: ASTHMA
     Dosage: 10 MG, 1X/DAY  IN THE EVENING
     Route: 048
  5. EFFEXOR XR [Suspect]
     Active Substance: VENLAFAXINE HYDROCHLORIDE
     Dosage: 150 MG, 1X/DAY IN THE MORNING
     Route: 048
     Dates: start: 2015, end: 20160722

REACTIONS (6)
  - Peripheral coldness [Unknown]
  - Withdrawal syndrome [Not Recovered/Not Resolved]
  - Nausea [Unknown]
  - Balance disorder [Unknown]
  - Poor quality sleep [Unknown]
  - Dizziness [Unknown]

NARRATIVE: CASE EVENT DATE: 2015
